FAERS Safety Report 7476892-9 (Version None)
Quarter: 2011Q2

REPORT INFORMATION
  Report Type: 
  Country: None (occurrence: None)
  Receive Date: 20110512
  Receipt Date: 20100108
  Transmission Date: 20111010
  Serious: Yes (Death, Hospitalization, Other)
  Sender: FDA-Public Use
  Company Number: US-BAYER-201010429NA

PATIENT
  Age: 74 Year
  Sex: Female
  Weight: 50.3 kg

DRUGS (33)
  1. BUMEX [Concomitant]
     Dosage: 0.5 MG/ML
     Route: 042
     Dates: start: 20050802, end: 20050802
  2. VERSED [Concomitant]
     Dosage: 4 MG
     Route: 042
     Dates: start: 20050803, end: 20050803
  3. PROPOFOL [Concomitant]
  4. PLATELETS [Concomitant]
     Dosage: 2 UNITS
     Dates: start: 20050803
  5. ALDACTONE [Concomitant]
     Dosage: 25 MG, UNK
     Route: 048
  6. LEVOPHED [Concomitant]
     Dosage: 6 MG, UNK
     Dates: start: 20050808, end: 20050808
  7. VERSED [Concomitant]
     Dosage: 5 MG, UNK
     Route: 042
     Dates: start: 20050802, end: 20050806
  8. VASOPRESSIN [LYPRESSIN] [Concomitant]
     Dosage: 200 IU
     Route: 042
     Dates: start: 20050802, end: 20050802
  9. POTASSIUM CHLORIDE [Concomitant]
     Dosage: UNK
     Dates: start: 20050802, end: 20050808
  10. ATENOLOL [Concomitant]
     Dosage: 25 MG, UNK
     Route: 048
  11. LIDOCAINE [Concomitant]
     Dosage: 100 MG, UNK
     Route: 042
     Dates: start: 20050802, end: 20050802
  12. FENTANYL CITRATE [Concomitant]
     Dosage: 100-250 MG
     Route: 042
     Dates: start: 20050802, end: 20050808
  13. PENTOTHAL [Concomitant]
     Dosage: 500 MG, UNK
     Route: 042
     Dates: start: 20050802, end: 20050802
  14. CALCIUM CHLORIDE ANHYDROUS [Concomitant]
     Dosage: 1 GM/250 ML.
     Route: 042
     Dates: start: 20050802, end: 20050808
  15. RED BLOOD CELLS [Concomitant]
     Dosage: 250 ML, UNK
     Route: 042
     Dates: start: 20050802
  16. FRESH FROZEN PLASMA [Concomitant]
     Dosage: 500 CC
     Route: 042
     Dates: start: 20050802
  17. TRASYLOL [Suspect]
     Indication: MITRAL VALVE REPLACEMENT
     Dosage: UNK
     Route: 042
     Dates: start: 20050802
  18. ISOPROTERENOL HCL [Concomitant]
     Dosage: 0.3 MG, UNK
     Route: 042
     Dates: start: 20050802, end: 20050808
  19. HEPARIN [Concomitant]
     Dosage: 1 MG/KILO
     Route: 042
     Dates: start: 20050802, end: 20050808
  20. DIFLUCAN [Concomitant]
     Dosage: 0.6-0.3/ML
     Route: 042
     Dates: start: 20050802, end: 20050806
  21. NOREPINEPHRINE BITARTRATE [Concomitant]
     Dosage: 2 MG, UNK
     Route: 042
     Dates: start: 20050802, end: 20050806
  22. VANCOMYCIN [Concomitant]
     Dosage: 1 G, UNK
     Dates: start: 20050802, end: 20050809
  23. RED BLOOD CELLS [Concomitant]
     Dosage: 1 UNIT
     Dates: start: 20050806
  24. TRASYLOL [Suspect]
     Indication: CORONARY ARTERY BYPASS
  25. COUMADIN [Concomitant]
     Dosage: 5 MG, UNK
     Route: 048
  26. MILRINONE [Concomitant]
     Dosage: 0.7 MCQ
     Route: 042
     Dates: start: 20050802, end: 20050806
  27. FRESH FROZEN PLASMA [Concomitant]
     Dosage: 3 UNITS
     Dates: start: 20050803
  28. PAVULON [Concomitant]
     Dosage: UNK
     Dates: start: 20050802, end: 20050802
  29. FLORA [Concomitant]
     Dosage: 500 MCG/5 ML
     Route: 042
     Dates: start: 20050802, end: 20050802
  30. EPINEPHRINE [Concomitant]
     Dosage: 5-16 MCQ
     Route: 042
     Dates: start: 20050802, end: 20050808
  31. EPINEPHRINE [Concomitant]
     Dosage: 2 MG
     Route: 042
     Dates: start: 20050802, end: 20050808
  32. MAXIPIME [Concomitant]
     Dosage: 2 G, UNK
     Route: 042
     Dates: start: 20050802, end: 20050802
  33. PLATELETS [Concomitant]
     Dosage: 250 ML, UNK
     Dates: start: 20050802

REACTIONS (13)
  - RENAL IMPAIRMENT [None]
  - ANXIETY [None]
  - RENAL FAILURE [None]
  - MULTI-ORGAN FAILURE [None]
  - UNEVALUABLE EVENT [None]
  - DEATH [None]
  - PAIN [None]
  - EMOTIONAL DISTRESS [None]
  - INJURY [None]
  - RENAL INJURY [None]
  - STRESS [None]
  - FEAR [None]
  - ANHEDONIA [None]
